FAERS Safety Report 17909946 (Version 1)
Quarter: 2020Q2

REPORT INFORMATION
  Report Type: Spontaneous
  Country: GB (occurrence: GB)
  Receive Date: 20200617
  Receipt Date: 20200617
  Transmission Date: 20200714
  Serious: Yes (Other)
  Sender: FDA-Public Use
  Company Number: NVSC2020GB052983

PATIENT
  Age: 4 Year
  Sex: Male
  Weight: 17.5 kg

DRUGS (2)
  1. METHOTREXATE. [Suspect]
     Active Substance: METHOTREXATE
     Indication: ACUTE LYMPHOCYTIC LEUKAEMIA
     Dosage: 12 MG, UNKNOWN
     Route: 037
     Dates: start: 20180813
  2. MERCAPTOPURINE. [Concomitant]
     Active Substance: MERCAPTOPURINE
     Indication: PRODUCT USED FOR UNKNOWN INDICATION
     Dosage: UNK
     Route: 065

REACTIONS (9)
  - Seizure [Recovered/Resolved]
  - Dyskinesia [Recovered/Resolved]
  - Unresponsive to stimuli [Recovered/Resolved]
  - Blepharospasm [Unknown]
  - Hypotonia [Unknown]
  - Excessive eye blinking [Unknown]
  - Altered state of consciousness [Unknown]
  - Eye movement disorder [Unknown]
  - Fall [Unknown]

NARRATIVE: CASE EVENT DATE: 20190429
